FAERS Safety Report 6451905-1 (Version None)
Quarter: 2009Q4

REPORT INFORMATION
  Report Type: 
  Country: None (occurrence: None)
  Receive Date: 20091123
  Receipt Date: 20091113
  Transmission Date: 20100525
  Serious: Yes (Other)
  Sender: FDA-Public Use
  Company Number: US-AMGEN-QUU372106

PATIENT
  Sex: Male
  Weight: 72.6 kg

DRUGS (1)
  1. ENBREL [Suspect]
     Indication: PSORIATIC ARTHROPATHY
     Route: 058
     Dates: start: 20090713, end: 20090813

REACTIONS (5)
  - BONE PAIN [None]
  - FATIGUE [None]
  - HYPOAESTHESIA [None]
  - MYALGIA [None]
  - PERONEAL NERVE PALSY [None]
